FAERS Safety Report 6431428-6 (Version None)
Quarter: 2009Q4

REPORT INFORMATION
  Report Type: 
  Country: None (occurrence: None)
  Receive Date: 20091106
  Receipt Date: 20091030
  Transmission Date: 20100525
  Serious: Yes (Life-Threatening, Hospitalization, Other)
  Sender: FDA-Public Use
  Company Number: PHHO2009FR13532

PATIENT
  Sex: Male
  Weight: 79 kg

DRUGS (2)
  1. STI571/CGP57148B T35717+TAB [Suspect]
     Indication: ACUTE LYMPHOCYTIC LEUKAEMIA
  2. CYMEVAN [Suspect]

REACTIONS (21)
  - ABDOMINAL PAIN [None]
  - AGRANULOCYTOSIS [None]
  - APHTHOUS STOMATITIS [None]
  - ASPERGILLOSIS [None]
  - BRONCHIOLITIS [None]
  - CYTOLYTIC HEPATITIS [None]
  - CYTOMEGALOVIRUS INFECTION [None]
  - EPSTEIN-BARR VIRUS INFECTION [None]
  - ESCHERICHIA INFECTION [None]
  - GASTRITIS [None]
  - GENERAL PHYSICAL HEALTH DETERIORATION [None]
  - GRAFT VERSUS HOST DISEASE [None]
  - HAEMATEMESIS [None]
  - JAUNDICE [None]
  - MUCORMYCOSIS [None]
  - PYREXIA [None]
  - RESPIRATORY DISORDER [None]
  - SKIN LESION [None]
  - STAPHYLOCOCCAL INFECTION [None]
  - THROMBOCYTOPENIA [None]
  - VOMITING [None]
